FAERS Safety Report 6217023-2 (Version None)
Quarter: 2009Q2

REPORT INFORMATION
  Report Type: 
  Country: None (occurrence: None)
  Receive Date: 20090604
  Receipt Date: 20090519
  Transmission Date: 20091009
  Serious: Yes (Other)
  Sender: FDA-Public Use
  Company Number: DSA_33747_2009

PATIENT
  Sex: Male
  Weight: 72.1 kg

DRUGS (6)
  1. DILTIAZEM HYDROCHLORIDE [Suspect]
     Indication: ANGINA PECTORIS
     Dosage: 60 MG TID ORAL, 60 MG TID ORAL
     Route: 048
     Dates: start: 20090311
  2. WARFARIN SODIUM [Concomitant]
  3. OMEPRAZOLE [Concomitant]
  4. ISOSORBIDE MONONITRATE [Concomitant]
  5. SYMBICORT [Concomitant]
  6. EZETIMIBE [Concomitant]

REACTIONS (6)
  - CONFUSIONAL STATE [None]
  - DISTURBANCE IN ATTENTION [None]
  - HEADACHE [None]
  - IMPAIRED DRIVING ABILITY [None]
  - NAUSEA [None]
  - PRODUCT QUALITY ISSUE [None]
